FAERS Safety Report 4694857-7 (Version None)
Quarter: 2005Q2

REPORT INFORMATION
  Report Type: 
  Country: None (occurrence: None)
  Receive Date: 20050620
  Receipt Date: 20050613
  Transmission Date: 20051028
  Serious: Yes (Other)
  Sender: FDA-Public Use
  Company Number: US-BRISTOL-MYERS SQUIBB COMPANY-13001136

PATIENT

DRUGS (2)
  1. NEFAZODONE HCL [Suspect]
  2. TRAZODONE HCL [Suspect]

REACTIONS (1)
  - DYSPHORIA [None]
